FAERS Safety Report 22199803 (Version 1)
Quarter: 2023Q2

REPORT INFORMATION
  Report Type: Spontaneous
  Country: JP (occurrence: JP)
  Receive Date: 20230412
  Receipt Date: 20230412
  Transmission Date: 20230722
  Serious: Yes (Death, Hospitalization)
  Sender: FDA-Public Use
  Company Number: JP-BAYER-2022A020449

PATIENT
  Age: 52 Year
  Sex: Female

DRUGS (3)
  1. XARELTO [Suspect]
     Active Substance: RIVAROXABAN
     Indication: Pulmonary embolism
     Dosage: 15 MG, BID
     Route: 048
     Dates: start: 20190319
  2. XARELTO [Suspect]
     Active Substance: RIVAROXABAN
     Indication: Pulmonary embolism
     Dosage: 15 MG, QD
     Route: 048
     Dates: start: 20190409
  3. OXYGEN [Concomitant]
     Active Substance: OXYGEN
     Indication: Pulmonary embolism

REACTIONS (2)
  - Uterine cancer [Fatal]
  - Metastases to abdominal cavity [Unknown]

NARRATIVE: CASE EVENT DATE: 20191220
